FAERS Safety Report 14067461 (Version 1)
Quarter: 2017Q4

REPORT INFORMATION
  Report Type: Spontaneous
  Country: US (occurrence: US)
  Receive Date: 20171008
  Receipt Date: 20171008
  Transmission Date: 20180321
  Serious: Yes (Disabling)
  Sender: FDA-Public Use
  Company Number: None

PATIENT
  Age: 38 Year
  Sex: Female
  Weight: 103.05 kg

DRUGS (17)
  1. ROPINIROLE. [Concomitant]
     Active Substance: ROPINIROLE
  2. SAFFLOWER GEL TABS [Concomitant]
  3. LYRICA [Suspect]
     Active Substance: PREGABALIN
     Indication: FIBROMYALGIA
     Dosage: EVERY 12 HOURS ORAL
     Route: 048
     Dates: start: 20171005, end: 20171007
  4. CLONIDINE. [Concomitant]
     Active Substance: CLONIDINE
  5. CARAFATE [Concomitant]
     Active Substance: SUCRALFATE
  6. BACLOFEN. [Concomitant]
     Active Substance: BACLOFEN
  7. DICYCLOMINE [Concomitant]
     Active Substance: DICYCLOMINE HYDROCHLORIDE
  8. LOPERAMIDE [Concomitant]
     Active Substance: LOPERAMIDE
  9. LYRICA [Suspect]
     Active Substance: PREGABALIN
     Indication: ARTHRITIS
     Dosage: EVERY 12 HOURS ORAL
     Route: 048
     Dates: start: 20171005, end: 20171007
  10. AMBIEN CR [Concomitant]
     Active Substance: ZOLPIDEM TARTRATE
  11. ONDANSETRON [Concomitant]
     Active Substance: ONDANSETRON
  12. PRO AIR INHALER [Concomitant]
  13. EXCEDRIN [Concomitant]
     Active Substance: ACETAMINOPHEN\ASPIRIN\CAFFEINE
  14. LAMICTAL XR [Concomitant]
     Active Substance: LAMOTRIGINE
  15. LATUDA [Concomitant]
     Active Substance: LURASIDONE HYDROCHLORIDE
  16. CLARITIN [Concomitant]
     Active Substance: LORATADINE
  17. EXCEDRIN [Concomitant]
     Active Substance: ACETAMINOPHEN\ASPIRIN\CAFFEINE

REACTIONS (9)
  - Gait disturbance [None]
  - Loss of consciousness [None]
  - Peripheral swelling [None]
  - Visual impairment [None]
  - Epistaxis [None]
  - Chest discomfort [None]
  - Fall [None]
  - Dizziness [None]
  - Aggression [None]

NARRATIVE: CASE EVENT DATE: 20171007
